FAERS Safety Report 19258426 (Version 1)
Quarter: 2021Q2

REPORT INFORMATION
  Report Type: Spontaneous
  Country: CN (occurrence: CN)
  Receive Date: 20210514
  Receipt Date: 20210514
  Transmission Date: 20210717
  Serious: Yes (Hospitalization)
  Sender: FDA-Public Use
  Company Number: CN-ASTRAZENECA-2021A349544

PATIENT
  Age: 70 Year
  Sex: Male

DRUGS (1)
  1. BREZTRI AEROSPHERE [Suspect]
     Active Substance: BUDESONIDE\FORMOTEROL\GLYCOPYRRONIUM
     Indication: CHRONIC OBSTRUCTIVE PULMONARY DISEASE
     Dosage: TWICE IN THE MORNING AND TWICE IN THE EVENING
     Route: 055
     Dates: start: 20210416

REACTIONS (3)
  - Rash macular [Unknown]
  - Pruritus [Unknown]
  - Hypersensitivity [Unknown]
